FAERS Safety Report 21988828 (Version 3)
Quarter: 2023Q1

REPORT INFORMATION
  Report Type: Spontaneous
  Country: GB (occurrence: GB)
  Receive Date: 20230214
  Receipt Date: 20230223
  Transmission Date: 20230417
  Serious: Yes (Death, Other)
  Sender: FDA-Public Use
  Company Number: GB-009507513-2302GBR000002

PATIENT
  Age: 76 Year
  Sex: Male

DRUGS (10)
  1. KEYTRUDA [Suspect]
     Active Substance: PEMBROLIZUMAB
     Indication: Adenosquamous cell lung cancer stage IV
     Dosage: UNK
     Dates: start: 202012
  2. CARBOPLATIN [Suspect]
     Active Substance: CARBOPLATIN
     Dosage: UNK
     Dates: start: 202012
  3. CARBOPLATIN [Suspect]
     Active Substance: CARBOPLATIN
     Indication: Adenosquamous cell lung cancer stage IV
  4. PACLITAXEL [Suspect]
     Active Substance: PACLITAXEL
     Indication: Adenosquamous cell lung cancer stage IV
     Dosage: UNK
     Dates: start: 202012
  5. FUROSEMIDE [Concomitant]
     Active Substance: FUROSEMIDE
  6. AMLODIPINE [Concomitant]
     Active Substance: AMLODIPINE BESYLATE
  7. ASPIRIN [Concomitant]
     Active Substance: ASPIRIN
  8. LACTULOSE [Concomitant]
     Active Substance: LACTULOSE
  9. ALBUTEROL [Concomitant]
     Active Substance: ALBUTEROL
  10. BECLOMETHASONE [Concomitant]
     Active Substance: BECLOMETHASONE

REACTIONS (12)
  - Malignant neoplasm progression [Fatal]
  - Neuropathy peripheral [Unknown]
  - Deep vein thrombosis [Unknown]
  - Superior vena cava occlusion [Unknown]
  - Malignant neoplasm progression [Unknown]
  - Blood calcium increased [Recovered/Resolved]
  - Skin toxicity [Unknown]
  - COVID-19 [Unknown]
  - Tracheal mass [Unknown]
  - Haemoptysis [Unknown]
  - Device ineffective [Unknown]
  - Dyspnoea [Unknown]

NARRATIVE: CASE EVENT DATE: 20201201
